FAERS Safety Report 8974162 (Version 1)
Quarter: 2012Q4

REPORT INFORMATION
  Report Type: Spontaneous
  Country: CN (occurrence: None)
  Receive Date: 20121211
  Receipt Date: 20121211
  Transmission Date: 20130627
  Serious: Yes (Other)
  Sender: FDA-Public Use
  Company Number: VAL_01159_2012

PATIENT
  Age: 64 Year
  Sex: Male
  Weight: 60 kg

DRUGS (1)
  1. LOTENSIN [Suspect]
     Indication: PLEURISY
     Route: 048
     Dates: start: 20110520, end: 20110520

REACTIONS (6)
  - Aphasia [None]
  - Cyanosis [None]
  - Heart rate decreased [None]
  - Apnoea [None]
  - Respiratory depression [None]
  - Coma [None]
